FAERS Safety Report 4734660-2 (Version None)
Quarter: 2005Q3

REPORT INFORMATION
  Report Type: 
  Country: None (occurrence: None)
  Receive Date: 20050802
  Receipt Date: 20050720
  Transmission Date: 20060218
  Serious: Yes (Death)
  Sender: FDA-Public Use
  Company Number: 2005098602

PATIENT
  Age: 82 Year
  Sex: Male

DRUGS (7)
  1. GLUCOTROL XL [Suspect]
     Indication: DIABETES MELLITUS
     Dosage: 5 MG
  2. FOSAMAX (ALENDRONAFE SODIUM) [Concomitant]
  3. PLAVIX [Concomitant]
  4. DITROPAN [Concomitant]
  5. ANTIHYPERTENSIVES (ANTIHYPERENSIVES) [Concomitant]
  6. LASIX [Concomitant]
  7. CELEBREX [Concomitant]

REACTIONS (2)
  - CONFUSIONAL STATE [None]
  - FEELING ABNORMAL [None]
